FAERS Safety Report 23409970 (Version 1)
Quarter: 2024Q1

REPORT INFORMATION
  Report Type: Spontaneous
  Country: JP (occurrence: JP)
  Receive Date: 20240117
  Receipt Date: 20240117
  Transmission Date: 20240410
  Serious: Yes (Death, Other)
  Sender: FDA-Public Use
  Company Number: JP-MSD-2401JPN001141J

PATIENT
  Age: 79 Year
  Sex: Male

DRUGS (1)
  1. KEYTRUDA [Suspect]
     Active Substance: PEMBROLIZUMAB
     Indication: Gingival cancer
     Dosage: UNK
     Route: 065

REACTIONS (2)
  - Malignant neoplasm progression [Fatal]
  - Drug ineffective [Unknown]
